FAERS Safety Report 4464229-9 (Version None)
Quarter: 2004Q4

REPORT INFORMATION
  Report Type: 
  Country: None (occurrence: None)
  Receive Date: 20041001
  Receipt Date: 20040921
  Transmission Date: 20050328
  Serious: Yes (Other)
  Sender: FDA-Public Use
  Company Number: AU-GLAXOSMITHKLINE-B0346608A

PATIENT
  Sex: Male

DRUGS (2)
  1. SERETIDE [Suspect]
     Dates: start: 20040917
  2. ANTIBIOTICS [Concomitant]

REACTIONS (4)
  - AGEUSIA [None]
  - ASTHMA [None]
  - DRUG INEFFECTIVE [None]
  - PHARMACEUTICAL PRODUCT COMPLAINT [None]
